FAERS Safety Report 8624507-6 (Version None)
Quarter: 2012Q3

REPORT INFORMATION
  Report Type: 
  Country: None (occurrence: None)
  Receive Date: 20120809
  Receipt Date: 20120730
  Transmission Date: 20120928
  Serious: Yes (Hospitalization, Other)
  Sender: FDA-Public Use
  Company Number: 2012MA009038

PATIENT
  Age: 40 Year
  Sex: Male
  Weight: 92.5 kg

DRUGS (3)
  1. ALKA-SELTZER XS (NO PREF. NAME) [Suspect]
     Indication: ABDOMINAL DISCOMFORT
     Dosage: 2 DF;X1;
     Dates: start: 20120609, end: 20120609
  2. IBUPROFEN [Suspect]
     Indication: GASTRIC DISORDER
     Dosage: 200 MG; BID;
     Dates: start: 20120609, end: 20120609
  3. OMEPRAZOLE [Concomitant]

REACTIONS (6)
  - MOTION SICKNESS [None]
  - ASTHENIA [None]
  - MALAISE [None]
  - ABDOMINAL PAIN UPPER [None]
  - PARALYSIS [None]
  - SYNCOPE [None]
